FAERS Safety Report 23924443 (Version 10)
Quarter: 2024Q3

REPORT INFORMATION
  Report Type: Spontaneous
  Country: ES (occurrence: ES)
  Receive Date: 20240531
  Receipt Date: 20240916
  Transmission Date: 20241016
  Serious: Yes (Hospitalization, Other)
  Sender: AUROBINDO
  Company Number: ES-ROCHE-3562735

PATIENT
  Age: 67 Year
  Sex: Female
  Weight: 69.1 kg

DRUGS (71)
  1. APIXABAN [Suspect]
     Active Substance: APIXABAN
     Indication: Product used for unknown indication
     Dosage: UNK
     Route: 065
     Dates: start: 20240226
  2. APIXABAN [Suspect]
     Active Substance: APIXABAN
     Dosage: UNK
     Route: 065
     Dates: start: 20240226, end: 20240505
  3. CARBOPLATIN [Suspect]
     Active Substance: CARBOPLATIN
     Indication: Diffuse large B-cell lymphoma stage IV
     Dosage: UNK
     Route: 042
     Dates: start: 20240206, end: 20240206
  4. CARBOPLATIN [Suspect]
     Active Substance: CARBOPLATIN
     Dosage: 5 MILLIGRAM/SQ. METER
     Route: 042
     Dates: start: 20240321, end: 20240321
  5. CARBOPLATIN [Suspect]
     Active Substance: CARBOPLATIN
     Dosage: UNK (ON 24/APR/2024, MOST RECENT DOSE OF CARBOPLATIN (2 AUC) RECEIVED PRIOR TO EVENT)
     Route: 065
     Dates: start: 20240424
  6. CARBOPLATIN [Suspect]
     Active Substance: CARBOPLATIN
     Dosage: UNK, CYCLICAL
     Route: 042
     Dates: start: 20240424
  7. DOXORUBICIN [Suspect]
     Active Substance: DOXORUBICIN
     Indication: Product used for unknown indication
     Dosage: UNK
     Route: 065
     Dates: start: 20230301, end: 20230601
  8. OMEPRAZOLE [Suspect]
     Active Substance: OMEPRAZOLE
     Indication: Product used for unknown indication
     Dosage: UNK
     Route: 065
     Dates: start: 2023
  9. ACETAMINOPHEN [Suspect]
     Active Substance: ACETAMINOPHEN
     Indication: Premedication
     Dosage: UNK
     Route: 065
     Dates: start: 20240226
  10. ACETAMINOPHEN [Suspect]
     Active Substance: ACETAMINOPHEN
     Dosage: 1000 MILLIGRAM, ONCE A DAY
     Route: 065
     Dates: start: 20240418, end: 20240418
  11. ACETAMINOPHEN [Suspect]
     Active Substance: ACETAMINOPHEN
     Dosage: 1000 MILLIGRAM (1000.000MG)
     Route: 042
     Dates: start: 20240425, end: 20240425
  12. ACETAMINOPHEN [Suspect]
     Active Substance: ACETAMINOPHEN
     Dosage: UNK
     Route: 065
     Dates: start: 20240506
  13. ACETAMINOPHEN [Suspect]
     Active Substance: ACETAMINOPHEN
     Dosage: 1000 MILLIGRAM
     Route: 065
     Dates: start: 20240408, end: 20240408
  14. ACETAMINOPHEN [Suspect]
     Active Substance: ACETAMINOPHEN
     Dosage: 1000 MILLIGRAM (1000.000MG)
     Route: 048
     Dates: start: 20240425, end: 20240425
  15. PREGABALIN [Suspect]
     Active Substance: PREGABALIN
     Indication: Product used for unknown indication
     Dosage: UNK
     Route: 065
     Dates: start: 20240226
  16. PREGABALIN [Suspect]
     Active Substance: PREGABALIN
     Dosage: UNK
     Route: 065
     Dates: start: 20240226, end: 20240509
  17. TRAMADOL [Suspect]
     Active Substance: TRAMADOL\TRAMADOL HYDROCHLORIDE
     Indication: Product used for unknown indication
     Dosage: UNK
     Route: 065
     Dates: start: 20240226
  18. RITUXIMAB [Suspect]
     Active Substance: RITUXIMAB
     Indication: Diffuse large B-cell lymphoma stage I
     Dosage: UNK UNK, CYCLICAL (CYCLE 1, AS A PART OF R-ICE REGIMEN)
     Route: 041
     Dates: start: 20240205, end: 20240205
  19. RITUXIMAB [Suspect]
     Active Substance: RITUXIMAB
     Dosage: UNK
     Route: 042
     Dates: start: 20230301, end: 20230316
  20. RITUXIMAB [Suspect]
     Active Substance: RITUXIMAB
     Dosage: 375 MILLIGRAM/SQ. METER, CYCLICAL (CYCLE 2, AS A PART OF R-ICE REGIMEN)
     Route: 041
     Dates: start: 20240320, end: 20240320
  21. RITUXIMAB [Suspect]
     Active Substance: RITUXIMAB
     Dosage: UNK
     Route: 041
     Dates: start: 20240323, end: 20240323
  22. RITUXIMAB [Suspect]
     Active Substance: RITUXIMAB
     Dosage: 375 MILLIGRAM/SQ. METER ( CYCLE 3, ONGOING, AS A PART OF R-ICE REGIMEN)
     Route: 041
     Dates: start: 20240423
  23. IFOSFAMIDE [Suspect]
     Active Substance: IFOSFAMIDE
     Indication: Diffuse large B-cell lymphoma stage I
     Dosage: UNK (CYCLE 1, FORMULATION: INFUSION, AS A PART OF R-ICE REGIMEN)
     Route: 042
     Dates: start: 20240206, end: 20240207
  24. IFOSFAMIDE [Suspect]
     Active Substance: IFOSFAMIDE
     Dosage: UNK
     Route: 042
     Dates: start: 20240206, end: 20240322
  25. IFOSFAMIDE [Suspect]
     Active Substance: IFOSFAMIDE
     Dosage: 5 MILLIGRAM/SQ. METER (CYCLE 2, FORMULATION: INFUSION, AS A PART OF R-ICE REGIMEN)
     Route: 042
     Dates: start: 20240321, end: 20240322
  26. IFOSFAMIDE [Suspect]
     Active Substance: IFOSFAMIDE
     Dosage: 2500 MG/M2, (CYCLE 3, FORMULATION: INFUSION, AS A PART OF R-ICE REGIMEN)
     Route: 042
     Dates: start: 20240424, end: 20240425
  27. IFOSFAMIDE [Suspect]
     Active Substance: IFOSFAMIDE
     Dosage: 5 MILLIGRAM/SQ. METER
     Route: 065
     Dates: start: 20240425
  28. IFOSFAMIDE [Suspect]
     Active Substance: IFOSFAMIDE
     Dosage: 2400 MILLIGRAM/SQ. METER
     Route: 042
     Dates: start: 20240424, end: 20240425
  29. ETOPOSIDE [Suspect]
     Active Substance: ETOPOSIDE
     Indication: Diffuse large B-cell lymphoma stage I
     Dosage: UNK, CYCLE 1, AS A PART OF R-ICE REGIMEN
     Route: 042
     Dates: start: 20240205, end: 20240207
  30. ETOPOSIDE [Suspect]
     Active Substance: ETOPOSIDE
     Dosage: 50 MILLIGRAM/SQ. METER ( CYCLE 2, AS A PART OF R-ICE REGIMEN)
     Route: 042
     Dates: start: 20240320, end: 20240322
  31. ETOPOSIDE [Suspect]
     Active Substance: ETOPOSIDE
     Dosage: 50 MILLIGRAM/SQ. METER, CYCLE 3, AS A PART OF R-ICE REGIMEN
     Route: 042
     Dates: start: 20240423, end: 20240425
  32. ETOPOSIDE [Suspect]
     Active Substance: ETOPOSIDE
     Dosage: 50 MILLIGRAM/SQ. METER, AS A PART OF R-ICE REGIMEN
     Route: 042
     Dates: start: 20240424
  33. ETOPOSIDE [Suspect]
     Active Substance: ETOPOSIDE
     Dosage: 50 MILLIGRAM/SQ. METER, AS A PART OF R-ICE REGIMEN
     Route: 042
     Dates: start: 20240425
  34. EPCORITAMAB [Suspect]
     Active Substance: EPCORITAMAB
     Indication: Diffuse large B-cell lymphoma stage I
     Dosage: 0.16 MILLIGRAM (0.16 MG, CYCLE 1, PRIMING DOSE)
     Route: 058
     Dates: start: 20240207, end: 20240207
  35. EPCORITAMAB [Suspect]
     Active Substance: EPCORITAMAB
     Dosage: 0.8 MILLIGRAM
     Route: 058
     Dates: start: 20240229, end: 20240229
  36. EPCORITAMAB [Suspect]
     Active Substance: EPCORITAMAB
     Dosage: UNK (0.8 MG, RE-PRIMING INTERMEDIATE DOSE)
     Route: 058
     Dates: start: 20240307, end: 20240307
  37. EPCORITAMAB [Suspect]
     Active Substance: EPCORITAMAB
     Dosage: 48 MILLIGRAM, (FIRST FULL DOSE, RE-PRIMING 1)
     Route: 058
     Dates: start: 20240314, end: 20240314
  38. EPCORITAMAB [Suspect]
     Active Substance: EPCORITAMAB
     Dosage: UNK (C2D1)
     Route: 058
     Dates: start: 20240322, end: 20240322
  39. EPCORITAMAB [Suspect]
     Active Substance: EPCORITAMAB
     Dosage: UNK (C2D8)
     Route: 058
     Dates: start: 20240410, end: 20240410
  40. EPCORITAMAB [Suspect]
     Active Substance: EPCORITAMAB
     Dosage: 48 MILLIGRAM
     Route: 058
     Dates: start: 20240418
  41. EPCORITAMAB [Suspect]
     Active Substance: EPCORITAMAB
     Dosage: 48 MILLIGRAM, (C3D8)
     Route: 065
     Dates: start: 20240503
  42. EPCORITAMAB [Suspect]
     Active Substance: EPCORITAMAB
     Dosage: 48 MICROGRAM/SQ. METER
     Route: 058
     Dates: start: 20240425
  43. EPCORITAMAB [Suspect]
     Active Substance: EPCORITAMAB
     Dosage: 48 MILLIGRAM
     Route: 065
     Dates: start: 20240520
  44. EPCORITAMAB [Suspect]
     Active Substance: EPCORITAMAB
     Dosage: 0.16 MILLIGRAM (0.16 MG, RE-PRIMING DOSE 1)
     Route: 058
     Dates: start: 20240229, end: 20240229
  45. CYCLOPHOSPHAMIDE [Suspect]
     Active Substance: CYCLOPHOSPHAMIDE
     Indication: Product used for unknown indication
     Dosage: UNK
     Route: 065
     Dates: start: 20230301, end: 20230616
  46. CALCIUM [Suspect]
     Active Substance: CALCIUM
     Indication: Product used for unknown indication
     Dosage: UNK
     Route: 065
     Dates: start: 20240226
  47. PREDNISONE [Suspect]
     Active Substance: PREDNISONE
     Indication: Product used for unknown indication
     Dosage: UNK
     Route: 065
     Dates: start: 20230301
  48. VINCRISTINE [Suspect]
     Active Substance: VINCRISTINE
     Indication: Product used for unknown indication
     Dosage: UNK
     Route: 065
     Dates: start: 20230301
  49. SULFAMETHOXAZOLE [Suspect]
     Active Substance: SULFAMETHOXAZOLE
     Indication: Product used for unknown indication
     Dosage: UNK
     Route: 065
     Dates: start: 20240226
  50. DEXCHLORPHENIRAMINE [Concomitant]
     Active Substance: DEXCHLORPHENIRAMINE
     Indication: Premedication
     Dosage: 2 MILLIGRAM
     Route: 065
     Dates: start: 20240408, end: 20240408
  51. DEXCHLORPHENIRAMINE [Concomitant]
     Active Substance: DEXCHLORPHENIRAMINE
     Dosage: 2 MILLIGRAM
     Route: 042
     Dates: start: 20240425
  52. DEXCHLORPHENIRAMINE [Concomitant]
     Active Substance: DEXCHLORPHENIRAMINE
     Dosage: UNK
     Route: 065
     Dates: start: 20240418
  53. DEXCHLORPHENIRAMINE [Concomitant]
     Active Substance: DEXCHLORPHENIRAMINE
     Dosage: 12 MILLIGRAM
     Route: 042
     Dates: start: 20240425, end: 20240425
  54. METOCLOPRAMIDE [Concomitant]
     Active Substance: METOCLOPRAMIDE
     Indication: Product used for unknown indication
     Dosage: UNK
     Route: 065
     Dates: start: 20240506, end: 20240509
  55. VITAMIN D [Concomitant]
     Active Substance: VITAMIN D NOS
     Indication: Product used for unknown indication
     Dosage: UNK
     Route: 065
     Dates: start: 2011
  56. TRIMETHOPRIM [Concomitant]
     Active Substance: TRIMETHOPRIM
     Indication: Product used for unknown indication
     Dosage: UNK
     Route: 065
     Dates: start: 20240226
  57. ACYCLOVIR [Concomitant]
     Active Substance: ACYCLOVIR
     Indication: Product used for unknown indication
     Dosage: UNK
     Route: 065
     Dates: start: 2023
  58. LORAZEPAM [Concomitant]
     Active Substance: LORAZEPAM
     Indication: Product used for unknown indication
     Dosage: UNK
     Route: 065
     Dates: start: 202301
  59. MAGNESIUM SULFATE [Concomitant]
     Active Substance: MAGNESIUM SULFATE\MAGNESIUM SULFATE HEPTAHYDRATE
     Indication: Product used for unknown indication
     Dosage: UNK
     Route: 065
     Dates: start: 20240506, end: 20240506
  60. ERGOCALCIFEROL [Concomitant]
     Active Substance: ERGOCALCIFEROL
     Indication: Product used for unknown indication
     Dosage: UNK
     Route: 065
     Dates: start: 20240226
  61. ERGOCALCIFEROL [Concomitant]
     Active Substance: ERGOCALCIFEROL
     Dosage: UNK
     Route: 065
     Dates: start: 20240226, end: 20240505
  62. PIPERACILLIN [Concomitant]
     Active Substance: PIPERACILLIN
     Indication: Product used for unknown indication
     Dosage: UNK
     Route: 065
     Dates: start: 20240506, end: 20240509
  63. METAMIZOLE [Concomitant]
     Active Substance: METAMIZOLE
     Indication: Product used for unknown indication
     Dosage: UNK
     Route: 065
     Dates: start: 20240506, end: 20240506
  64. ONDANSETRON [Concomitant]
     Active Substance: ONDANSETRON
     Indication: Product used for unknown indication
     Dosage: UNK
     Route: 065
     Dates: start: 20240506, end: 20240509
  65. TAZOBACTAM [Concomitant]
     Active Substance: TAZOBACTAM
     Indication: Product used for unknown indication
     Dosage: UNK
     Route: 065
     Dates: start: 20240506, end: 20240509
  66. METOCLOPRAMIDE HYDROCHLORIDE [Concomitant]
     Active Substance: METOCLOPRAMIDE HYDROCHLORIDE
     Indication: Product used for unknown indication
     Dosage: UNK
     Route: 065
     Dates: start: 20230506, end: 20230509
  67. APIXABAN [Concomitant]
     Active Substance: APIXABAN
     Indication: Product used for unknown indication
     Dosage: UNK
     Route: 065
     Dates: start: 20240226, end: 20240505
  68. ACETAMINOPHEN [Concomitant]
     Active Substance: ACETAMINOPHEN
     Indication: Premedication
     Dosage: 1000 MILLIGRAM
     Route: 065
     Dates: start: 20240408, end: 20240408
  69. ACETAMINOPHEN [Concomitant]
     Active Substance: ACETAMINOPHEN
     Dosage: 1000 MILLIGRAM
     Route: 042
     Dates: start: 20240425, end: 20240425
  70. PREGABALIN [Concomitant]
     Active Substance: PREGABALIN
     Indication: Product used for unknown indication
     Dosage: UNK
     Route: 065
     Dates: start: 20240226
  71. OMEPRAZOLE [Concomitant]
     Active Substance: OMEPRAZOLE
     Indication: Product used for unknown indication
     Dosage: UNK
     Route: 065
     Dates: start: 2023

REACTIONS (1)
  - Febrile neutropenia [Recovered/Resolved]

NARRATIVE: CASE EVENT DATE: 20240506
